FAERS Safety Report 7622261-8 (Version None)
Quarter: 2011Q3

REPORT INFORMATION
  Report Type: 
  Country: None (occurrence: None)
  Receive Date: 20110720
  Receipt Date: 20110328
  Transmission Date: 20111222
  Serious: Yes (Hospitalization)
  Sender: FDA-Public Use
  Company Number: IT-BAYER-2011-027173

PATIENT
  Age: 71 Year
  Sex: Male

DRUGS (4)
  1. ASPIRIN [Suspect]
     Indication: PLATELET AGGREGATION INHIBITION
     Dosage: 100 MG, QD
     Route: 048
     Dates: start: 20030301, end: 20110212
  2. AULIN [Suspect]
     Indication: HEADACHE
     Dosage: 100 MG, QD
     Route: 048
     Dates: start: 20110311, end: 20110312
  3. CARDICOR [Concomitant]
     Indication: CARDIAC FAILURE
     Dosage: DAILY DOSE 5 MG
     Route: 048
     Dates: start: 20090301, end: 20110312
  4. DIFLUCAN [Concomitant]
     Indication: FUNGAL SKIN INFECTION
     Dosage: DAILY DOSE 150 MG
     Route: 048
     Dates: start: 20110308, end: 20110308

REACTIONS (3)
  - MELAENA [None]
  - EROSIVE DUODENITIS [None]
  - GASTRIC ULCER HAEMORRHAGE [None]
